FAERS Safety Report 17650759 (Version 3)
Quarter: 2020Q2

REPORT INFORMATION
  Report Type: Report from Study
  Country: FR (occurrence: FR)
  Receive Date: 20200409
  Receipt Date: 20200423
  Transmission Date: 20200713
  Serious: Yes (Death, Life-Threatening, Hospitalization, Other)
  Sender: FDA-Public Use
  Company Number: FR-JAZZ-2020-FR-004760

PATIENT

DRUGS (3)
  1. TACROLIMUS. [Suspect]
     Active Substance: TACROLIMUS
     Indication: PROPHYLAXIS AGAINST GRAFT VERSUS HOST DISEASE
     Dosage: UNKNOWN DOSE
     Route: 048
     Dates: start: 20190723, end: 20191015
  2. CYCLOSPORIN [Suspect]
     Active Substance: CYCLOSPORINE
     Indication: PROPHYLAXIS AGAINST GRAFT VERSUS HOST DISEASE
     Dosage: 5 MILLIGRAM/KILOGRAM/DAY
     Route: 042
     Dates: start: 20190723, end: 20190810
  3. DEFITELIO [Suspect]
     Active Substance: DEFIBROTIDE SODIUM
     Indication: VENOOCCLUSIVE LIVER DISEASE
     Dosage: 25 MILLIGRAM/KILOGRAM/DAY
     Route: 042
     Dates: start: 20190730, end: 20190808

REACTIONS (22)
  - Acute respiratory distress syndrome [Fatal]
  - Diabetes mellitus [Unknown]
  - Acute graft versus host disease in skin [Fatal]
  - Pulmonary fibrosis [Fatal]
  - Thrombocytopenia [Unknown]
  - Hypernatraemia [Unknown]
  - Melaena [Unknown]
  - Tachycardia [Unknown]
  - Hypertension [Unknown]
  - Pyrexia [Unknown]
  - Pulmonary toxicity [Fatal]
  - Oesophagitis [Unknown]
  - Hyperglycaemia [Unknown]
  - Cytomegalovirus infection [Unknown]
  - Bradycardia [Not Recovered/Not Resolved]
  - Urinary tract candidiasis [Unknown]
  - Off label use [Unknown]
  - Graft versus host disease in gastrointestinal tract [Fatal]
  - Protein-losing gastroenteropathy [Unknown]
  - Posterior reversible encephalopathy syndrome [Recovered/Resolved]
  - Adenovirus infection [Unknown]
  - Pulmonary imaging procedure abnormal [Unknown]

NARRATIVE: CASE EVENT DATE: 20190730
